FAERS Safety Report 8582721-2 (Version None)
Quarter: 2012Q3

REPORT INFORMATION
  Report Type: 
  Country: None (occurrence: None)
  Receive Date: 20120809
  Receipt Date: 20120731
  Transmission Date: 20120928
  Serious: Yes (Other)
  Sender: FDA-Public Use
  Company Number: CA-JNJFOC-20120603010

PATIENT
  Sex: Male
  Weight: 91.2 kg

DRUGS (6)
  1. REMICADE [Suspect]
     Dosage: 36TH INFUSION
     Route: 042
  2. MESALAMINE [Concomitant]
  3. NEXIUM [Concomitant]
  4. IMURAN [Concomitant]
  5. DOXYCYCLINE HCL [Concomitant]
  6. REMICADE [Suspect]
     Indication: COLITIS ULCERATIVE
     Dosage: 35 INFUSIONS TO PRESENT
     Route: 042

REACTIONS (1)
  - CYST [None]
